FAERS Safety Report 22066038 (Version 2)
Quarter: 2023Q2

REPORT INFORMATION
  Report Type: Spontaneous
  Country: US (occurrence: US)
  Receive Date: 20230306
  Receipt Date: 20230407
  Transmission Date: 20230722
  Serious: No
  Sender: FDA-Public Use
  Company Number: US-KARYOPHARM-2023KPT000049

PATIENT

DRUGS (14)
  1. XPOVIO [Suspect]
     Active Substance: SELINEXOR
     Indication: Glioblastoma
     Dosage: 80 MG, WEEKLY
     Route: 048
     Dates: start: 202301, end: 202303
  2. OXYCODONE [Concomitant]
     Active Substance: OXYCODONE
  3. ONDANSETRON [Concomitant]
     Active Substance: ONDANSETRON
  4. LORAZEPAM [Concomitant]
     Active Substance: LORAZEPAM
  5. NORTRIPTYLINE [Concomitant]
     Active Substance: NORTRIPTYLINE
  6. LOSARTAN [Concomitant]
     Active Substance: LOSARTAN
  7. AVASTIN [Concomitant]
     Active Substance: BEVACIZUMAB
  8. BUTALBITAL, ACETAMINOPHEN, AND CAFFEINE [Concomitant]
     Active Substance: ACETAMINOPHEN\BUTALBITAL\CAFFEINE
  9. CYCLOBENZAPRINE [Concomitant]
     Active Substance: CYCLOBENZAPRINE
  10. FLECAINIDE [Concomitant]
     Active Substance: FLECAINIDE
  11. HYDROCHLOROTHIAZIDE [Concomitant]
     Active Substance: HYDROCHLOROTHIAZIDE
  12. ACETAMINOPHEN\HYDROCODONE [Concomitant]
     Active Substance: ACETAMINOPHEN\HYDROCODONE
  13. LEVETIRACETAM [Concomitant]
     Active Substance: LEVETIRACETAM
  14. OLANZAPINE [Concomitant]
     Active Substance: OLANZAPINE

REACTIONS (6)
  - Headache [Unknown]
  - Neck pain [Unknown]
  - Glioblastoma [Unknown]
  - Nausea [Unknown]
  - Off label use [Unknown]
  - Drug ineffective [Unknown]

NARRATIVE: CASE EVENT DATE: 20230101
